FAERS Safety Report 6924454-1 (Version None)
Quarter: 2010Q3

REPORT INFORMATION
  Report Type: 
  Country: None (occurrence: None)
  Receive Date: 20100810
  Receipt Date: 20100726
  Transmission Date: 20110219
  Serious: Yes (Hospitalization)
  Sender: FDA-Public Use
  Company Number: DSJ-2010-12462

PATIENT
  Age: 73 Year
  Sex: Female

DRUGS (5)
  1. BENICAR [Suspect]
     Indication: HYPERTENSION
     Dosage: 20 MG (20 MG, 1 IN 1 ), PER ORAL; 40 MG (40 MG 1 IN 1 D), PER ORAL
     Route: 048
     Dates: start: 20050101
  2. BENICAR [Suspect]
     Indication: HYPERTENSION
     Dosage: 20 MG (20 MG, 1 IN 1 ), PER ORAL; 40 MG (40 MG 1 IN 1 D), PER ORAL
     Route: 048
     Dates: start: 20050101
  3. ROSUVASTATIN (ROSUVASTATIN) (ROSUVASTATIN) [Concomitant]
  4. LEVOTHYROXINE SODIUM (LEVOTHYROXINE SODIUM) (LEVOTHYROXINE SODIUM) [Concomitant]
  5. TRAZODONE (TRAZODONE) (TRAZODONE) [Concomitant]

REACTIONS (3)
  - ARRHYTHMIA [None]
  - OVERDOSE [None]
  - SYNCOPE [None]
